FAERS Safety Report 16917832 (Version 1)
Quarter: 2019Q4

REPORT INFORMATION
  Report Type: Spontaneous
  Country: FR (occurrence: FR)
  Receive Date: 20191015
  Receipt Date: 20191015
  Transmission Date: 20200122
  Serious: Yes (Hospitalization)
  Sender: FDA-Public Use
  Company Number: FR-TEVA-2019-FR-1120074

PATIENT
  Age: 82 Year
  Sex: Female

DRUGS (9)
  1. LOXEN L P 50 MG, EXTENDED-RELEASE CAPSULE [Concomitant]
  2. PREVISCAN [Concomitant]
  3. ACTONEL 75 MG, FILMED TABLET [Concomitant]
  4. CALCIUM VITAMINE D3 GNR [Concomitant]
  5. CANDESARTAN CILEXETIL. [Concomitant]
     Active Substance: CANDESARTAN CILEXETIL
  6. CHOLURSO [Concomitant]
     Active Substance: URSODIOL
  7. ATORVASTATINE [Concomitant]
     Active Substance: ATORVASTATIN
  8. PROPRANOLOL [Suspect]
     Active Substance: PROPRANOLOL HYDROCHLORIDE
     Indication: ARRHYTHMIA
     Dosage: 0.5 CP 2 TIMES A DAY 40 MG
     Route: 048
     Dates: end: 20190903
  9. FLECAINE [Suspect]
     Active Substance: FLECAINIDE
     Indication: ARRHYTHMIA
     Dosage: 10 MG
     Route: 048
     Dates: end: 20190903

REACTIONS (3)
  - Fall [Recovered/Resolved]
  - Orthostatic hypotension [Recovered/Resolved]
  - Bradycardia [Recovered/Resolved]

NARRATIVE: CASE EVENT DATE: 201909
